FAERS Safety Report 6415787-6 (Version None)
Quarter: 2009Q4

REPORT INFORMATION
  Report Type: 
  Country: None (occurrence: None)
  Receive Date: 20091027
  Receipt Date: 20091015
  Transmission Date: 20100525
  Serious: Yes (Hospitalization)
  Sender: FDA-Public Use
  Company Number: JP-PFIZER INC-2009287707

PATIENT
  Age: 65 Year

DRUGS (5)
  1. CAMPTOSAR [Suspect]
     Indication: GASTRIC CANCER
     Dosage: 247.5 MG,
     Route: 041
     Dates: start: 20090727, end: 20090907
  2. TS-1 [Suspect]
     Indication: GASTRIC CANCER
     Dosage: 60 MG, 2X/DAY
     Route: 048
     Dates: start: 20090727, end: 20090918
  3. DECADRON [Suspect]
     Indication: GASTRIC CANCER
     Dosage: 1 MG, 2X/DAY
     Route: 048
     Dates: start: 20090731, end: 20090918
  4. OXYCONTIN [Concomitant]
     Indication: GASTRIC CANCER
     Dosage: 5 MG, 2X/DAY
     Route: 048
     Dates: start: 20090724, end: 20090918
  5. HYPEN [Concomitant]
     Indication: GASTRIC CANCER
     Dosage: 200 MG, 2X/DAY
     Route: 048
     Dates: start: 20090724, end: 20090918

REACTIONS (1)
  - PNEUMOCYSTIS JIROVECI PNEUMONIA [None]
